FAERS Safety Report 9331344 (Version 1)
Quarter: 2013Q2

REPORT INFORMATION
  Report Type: Spontaneous
  Country: US (occurrence: US)
  Receive Date: 20130605
  Receipt Date: 20130605
  Transmission Date: 20140414
  Serious: No
  Sender: FDA-Public Use
  Company Number: US-TARO-2012P1064717

PATIENT
  Age: 4 Year
  Sex: Male
  Weight: 14.52 kg

DRUGS (4)
  1. CETIRIZINE HCL ORAL SOLUTION ALLERGY 1 MG/ML OTC [Suspect]
     Route: 048
     Dates: end: 20121110
  2. CETIRIZINE HCL ORAL SOLUTION ALLERGY 1 MG/ML OTC [Suspect]
     Route: 048
     Dates: start: 201210, end: 20121110
  3. BENADRYL [Concomitant]
  4. VERAMYST [Concomitant]
     Route: 045

REACTIONS (3)
  - Cough [Recovered/Resolved]
  - Nasopharyngitis [Unknown]
  - Hypersensitivity [Unknown]
